FAERS Safety Report 4853137-7 (Version None)
Quarter: 2005Q4

REPORT INFORMATION
  Report Type: 
  Country: None (occurrence: None)
  Receive Date: 20051209
  Receipt Date: 20051108
  Transmission Date: 20060501
  Serious: Yes (Death)
  Sender: FDA-Public Use
  Company Number: MK200512-0085-1

PATIENT
  Age: 50 Year

DRUGS (3)
  1. ANAFRANIL CAP [Suspect]
     Dates: end: 20040101
  2. VENLAFAXINE HCL [Suspect]
  3. OLANZAPINE [Suspect]

REACTIONS (2)
  - COMPLETED SUICIDE [None]
  - MULTIPLE DRUG OVERDOSE INTENTIONAL [None]
